FAERS Safety Report 10384857 (Version 1)
Quarter: 2014Q3

REPORT INFORMATION
  Report Type: Spontaneous
  Country: US (occurrence: None)
  Receive Date: 20140813
  Receipt Date: 20140813
  Transmission Date: 20150326
  Serious: Yes (Other)
  Sender: FDA-Public Use
  Company Number: None

PATIENT
  Age: 33 Year
  Sex: Female
  Weight: 82.56 kg

DRUGS (2)
  1. LEVOFLOXACIN 500MG ZYDUS [Suspect]
     Active Substance: LEVOFLOXACIN
     Indication: SINUSITIS
     Dosage: 1 PILL ONCE DAILY TAKEN BY MOUTH
     Route: 048
     Dates: start: 20140501, end: 20140508
  2. LEVOFLOXACIN 500MG TEVA [Suspect]
     Active Substance: LEVOFLOXACIN

REACTIONS (7)
  - Nerve injury [None]
  - Neuropathy peripheral [None]
  - Drug dispensing error [None]
  - Facial pain [None]
  - Paraesthesia [None]
  - Drug effect decreased [None]
  - Thymus disorder [None]

NARRATIVE: CASE EVENT DATE: 20140508
